FAERS Safety Report 9225433 (Version 2)
Quarter: 2013Q2

REPORT INFORMATION
  Report Type: Spontaneous
  Country: ZA (occurrence: None)
  Receive Date: 20130409
  Receipt Date: 20130426
  Transmission Date: 20140414
  Serious: Yes (Hospitalization)
  Sender: FDA-Public Use
  Company Number: AUR-APL-2013-02854

PATIENT
  Age: 71 Month
  Sex: Female

DRUGS (11)
  1. ABACAVIR [Suspect]
     Indication: HIV INFECTION
  2. LAMIVUDINE [Suspect]
     Indication: HIV INFECTION
     Dosage: 1D
  3. EFAVIRENZ [Suspect]
     Indication: HIV INFECTION
  4. AMOXICILLIN+CLAVULANIC ACID [Suspect]
     Indication: TUBERCULOSIS
  5. LINEZOLID [Suspect]
     Indication: TUBERCULOSIS
  6. CAPREOMYCIN [Suspect]
     Indication: TUBERCULOSIS
  7. TERIZIDONE [Suspect]
     Indication: TUBERCULOSIS
  8. PARA-AMINOSALICYLIC ACID [Suspect]
     Indication: TUBERCULOSIS
  9. CLARITHROMYCIN (CLARITHROMYCIN) [Suspect]
     Indication: TUBERCULOSIS
  10. MOXIFLOXACIN [Suspect]
     Indication: TUBERCULOSIS
  11. CLOFAZIMINE [Suspect]
     Indication: TUBERCULOSIS

REACTIONS (4)
  - Pancreatitis [None]
  - Lactic acidosis [None]
  - Rash [None]
  - Neuropathy peripheral [None]
